FAERS Safety Report 17113615 (Version 1)
Quarter: 2019Q4

REPORT INFORMATION
  Report Type: Spontaneous
  Country: IE (occurrence: IE)
  Receive Date: 20191205
  Receipt Date: 20191205
  Transmission Date: 20200122
  Serious: Yes (Other)
  Sender: FDA-Public Use
  Company Number: IE-TEVA-2019-IE-1146837

PATIENT
  Age: 67 Year
  Sex: Male
  Weight: 82 kg

DRUGS (4)
  1. CABOMETYX [Concomitant]
     Active Substance: CABOZANTINIB S-MALATE
     Indication: RENAL CELL CARCINOMA
     Dosage: 40 MG
     Route: 048
     Dates: start: 20181109
  2. LEVOFLOXACIN (G) [Suspect]
     Active Substance: LEVOFLOXACIN
     Indication: LOWER RESPIRATORY TRACT INFECTION
     Dosage: 500 MG
     Route: 042
     Dates: start: 20191026, end: 20191028
  3. AUGMENTIN INTRAVENOUS 1000MG/200MG POWDER FOR SOLU [Concomitant]
     Indication: LOWER RESPIRATORY TRACT INFECTION
     Dosage: FOR ACTIVE INGREDIENT AMOXYCILLIN SODIUM THE STRENGTH IS 1000 MILLIGRAM .?FOR ACTIVE INGREDIENT CLA
     Route: 042
     Dates: start: 20191024, end: 20191024
  4. ELTROXIN 100 MICROGRAM TABLETS [Concomitant]
     Indication: HYPOTHYROIDISM
     Dosage: TAKEN FOR MORE THAN 3 MONTHS, 100 MCG

REACTIONS (2)
  - Tendon pain [Unknown]
  - Pain [Unknown]

NARRATIVE: CASE EVENT DATE: 20191028
